FAERS Safety Report 16332471 (Version 2)
Quarter: 2019Q2

REPORT INFORMATION
  Report Type: Spontaneous
  Country: US (occurrence: US)
  Receive Date: 20190520
  Receipt Date: 20190628
  Transmission Date: 20190711
  Serious: Yes (Other)
  Sender: FDA-Public Use
  Company Number: US-PFIZER INC-2019208015

PATIENT
  Age: 41 Year
  Sex: Female

DRUGS (8)
  1. NASACORT [Concomitant]
     Active Substance: TRIAMCINOLONE ACETONIDE
     Dosage: 4 DF, 1X/DAY 1X/DAY(ONCE A DAY 2 SPRAYS EA NOSTRIL)
     Dates: start: 201810
  2. PREMARIN [Suspect]
     Active Substance: ESTROGENS, CONJUGATED
     Indication: HYSTERECTOMY
  3. PREMARIN [Suspect]
     Active Substance: ESTROGENS, CONJUGATED
     Indication: HORMONE THERAPY
  4. XARELTO [Concomitant]
     Active Substance: RIVAROXABAN
     Dosage: 20 MG, DAILY
     Dates: start: 201801
  5. RAMIPRIL. [Concomitant]
     Active Substance: RAMIPRIL
     Dosage: 10 MG, DAILY
     Dates: start: 201807
  6. CLARITIN [Concomitant]
     Active Substance: LORATADINE
     Dosage: 10 MG, DAILY
  7. PREMARIN [Suspect]
     Active Substance: ESTROGENS, CONJUGATED
     Indication: ANTICOAGULANT THERAPY
     Dosage: 1.25 MG, UNK(5 DAYS A WEEK)
     Dates: start: 1981
  8. NAPROXEN. [Concomitant]
     Active Substance: NAPROXEN
     Dosage: 500 MG, DAILY

REACTIONS (10)
  - Off label use [Unknown]
  - Macular degeneration [Unknown]
  - Dysphonia [Not Recovered/Not Resolved]
  - Agitation [Unknown]
  - Malaise [Recovered/Resolved]
  - Oropharyngeal discomfort [Not Recovered/Not Resolved]
  - Asthenia [Unknown]
  - Hypertension [Unknown]
  - Heart rate irregular [Not Recovered/Not Resolved]
  - Depression [Unknown]

NARRATIVE: CASE EVENT DATE: 1981
